FAERS Safety Report 8507373 (Version 2)
Quarter: 2013Q1

REPORT INFORMATION
  Report Type: Spontaneous
  Country: US (occurrence: US)
  Receive Date: 20120412
  Receipt Date: 20130326
  Transmission Date: 20140127
  Serious: No
  Sender: FDA-Public Use
  Company Number: US-ASTRAZENECA-2011SE61330

PATIENT
  Age: 50 Year
  Sex: Female
  Weight: 61.2 kg

DRUGS (12)
  1. NEXIUM [Suspect]
     Indication: GASTRIC ULCER
     Route: 048
  2. SEROQUEL [Suspect]
     Indication: SLEEP DISORDER
     Route: 048
  3. SEROQUEL [Suspect]
     Indication: DEPRESSION
     Route: 048
  4. ABILOFIDE [Concomitant]
  5. BENZOPAMINE [Concomitant]
  6. LEVOFLOROCINE [Concomitant]
  7. NEUPRROPAMINE [Concomitant]
  8. CYMBALTA [Concomitant]
  9. LAMITAL [Concomitant]
  10. ZOPOMAX [Concomitant]
  11. PRIZODONE [Concomitant]
  12. DESICRE [Concomitant]

REACTIONS (6)
  - Cognitive disorder [Unknown]
  - Bipolar disorder [Unknown]
  - Insomnia [Unknown]
  - Abdominal discomfort [Unknown]
  - Off label use [Unknown]
  - Drug dose omission [Unknown]
